FAERS Safety Report 8334878-6 (Version None)
Quarter: 2012Q2

REPORT INFORMATION
  Report Type: 
  Country: None (occurrence: None)
  Receive Date: 20120503
  Receipt Date: 20120430
  Transmission Date: 20120825
  Serious: No
  Sender: FDA-Public Use
  Company Number: US-B.I. PHARMACEUTICALS,INC./RIDGEFIELD-2012-BP-05490BP

PATIENT
  Sex: Male

DRUGS (18)
  1. CRESTOR [Concomitant]
     Dosage: 5 MG
     Dates: start: 20110601
  2. PRISTIQ XR 24H [Concomitant]
     Dosage: 50 MG
     Dates: start: 20100823
  3. ACTOS [Concomitant]
     Dosage: 45 MG
     Route: 048
  4. TRICOR [Concomitant]
     Dosage: 48 MG
     Dates: start: 20100823
  5. ZETIA [Concomitant]
     Dosage: 10 MG
     Dates: start: 20100823
  6. TRADJENTA [Suspect]
     Indication: TYPE 2 DIABETES MELLITUS
     Route: 048
     Dates: start: 20120305, end: 20120309
  7. PRISTIQ XR 24H [Concomitant]
     Dosage: 100 MG
     Dates: start: 20120305
  8. ACIPHEX [Concomitant]
     Dosage: 20 MG
     Dates: start: 20100823
  9. TOPROL-XL [Concomitant]
     Dosage: 100 MG
     Dates: start: 20100823
  10. NORVASC [Concomitant]
     Dosage: 5 MG
     Route: 048
  11. RAMIPRIL [Concomitant]
     Dosage: 10 MG
     Route: 048
  12. MAGNESIUM OXIDE [Concomitant]
     Dosage: 1200 MG
     Route: 048
     Dates: start: 20111125
  13. AF-ASPIRIN CHILDRENS [Concomitant]
     Dosage: 81 MG
     Dates: start: 20100823
  14. CVS VITAMIN D [Concomitant]
     Dates: start: 20100823
  15. VICODIN [Concomitant]
     Dates: start: 20110601
  16. TOPROL-XL [Concomitant]
     Dosage: 200 MG
     Dates: start: 20120305
  17. MAGNESIUM OXIDE [Concomitant]
     Dosage: 800 MG
     Route: 048
  18. CHOLECALCIFEROL [Concomitant]
     Dates: start: 20111125

REACTIONS (2)
  - BILIRUBIN URINE [None]
  - CHROMATURIA [None]
